FAERS Safety Report 4604163-4 (Version None)
Quarter: 2005Q1

REPORT INFORMATION
  Report Type: 
  Country: None (occurrence: None)
  Receive Date: 20050214
  Receipt Date: 20041110
  Transmission Date: 20050727
  Serious: No
  Sender: FDA-Public Use
  Company Number: US_0411108056

PATIENT
  Sex: Male

DRUGS (2)
  1. CIALIS [Suspect]
  2. UNSPECIFIED CALCIUM CHANNEL BLOCKER [Concomitant]

REACTIONS (2)
  - BACK PAIN [None]
  - MYALGIA [None]
